FAERS Safety Report 9093625 (Version 1)
Quarter: 2013Q1

REPORT INFORMATION
  Report Type: Spontaneous
  Country: US (occurrence: None)
  Receive Date: 20130213
  Receipt Date: 20130213
  Transmission Date: 20140127
  Serious: Yes (Other)
  Sender: FDA-Public Use
  Company Number: None

PATIENT
  Sex: Female
  Weight: 83.92 kg

DRUGS (2)
  1. MONTELUKAST [Suspect]
     Indication: RESPIRATORY DISORDER
     Dates: start: 20130107
  2. MONTELUKAST [Suspect]
     Dates: start: 20130120

REACTIONS (3)
  - Dyspnoea [None]
  - Lung disorder [None]
  - Pain [None]
